FAERS Safety Report 16613912 (Version 12)
Quarter: 2019Q4

REPORT INFORMATION
  Report Type: Report from Study
  Country: CN (occurrence: CN)
  Receive Date: 20190723
  Receipt Date: 20191204
  Transmission Date: 20200122
  Serious: Yes (Death, Hospitalization)
  Sender: FDA-Public Use
  Company Number: CN-ROCHE-2355487

PATIENT
  Age: 56 Year
  Sex: Male
  Weight: 80.5 kg

DRUGS (8)
  1. MORPHINE HYDROCHLORIDE [Concomitant]
     Active Substance: MORPHINE HYDROCHLORIDE
     Route: 065
     Dates: start: 20190826, end: 20191025
  2. BEVACIZUMAB. [Suspect]
     Active Substance: BEVACIZUMAB
     Indication: HEPATOCELLULAR CARCINOMA
     Dosage: MOST RECENT DOSE PRIOR TO EVENT ONSET ON 06/JUN/2019, (1215 MG)
     Route: 042
     Dates: start: 20190221
  3. MAGNESIUM ISOGLYCYRRHIZINATE [Concomitant]
     Active Substance: MAGNESIUM ISOGLYCYRRHIZINATE
     Dosage: 24/SEP/2019
     Route: 065
     Dates: start: 20190905, end: 20190924
  4. BICYCLOL [Concomitant]
     Active Substance: BICYCLOL
     Route: 065
     Dates: start: 20190425, end: 20190712
  5. ATEZOLIZUMAB. [Suspect]
     Active Substance: ATEZOLIZUMAB
     Indication: HEPATOCELLULAR CARCINOMA
     Dosage: ON DAY 1 EACH 21 DAY CYCLE?MOST RECENT DOSE PRIOR TO ADVERSE EVEN ON 06/JUN/2019 (1200 MG)
     Route: 042
     Dates: start: 20190221
  6. ENTECAVIR. [Concomitant]
     Active Substance: ENTECAVIR
     Indication: HEPATITIS B
     Route: 065
     Dates: start: 20190219, end: 20191025
  7. TYLOX [Concomitant]
     Active Substance: ACETAMINOPHEN\OXYCODONE HYDROCHLORIDE
     Route: 065
     Dates: start: 20190809, end: 20190825
  8. DIISOPROPYLAMINE DICHLOROACETATE [Concomitant]
     Route: 065
     Dates: start: 20190903

REACTIONS (1)
  - Hepatic function abnormal [Not Recovered/Not Resolved]

NARRATIVE: CASE EVENT DATE: 20190606
